FAERS Safety Report 6003626-7 (Version None)
Quarter: 2008Q4

REPORT INFORMATION
  Report Type: 
  Country: None (occurrence: None)
  Receive Date: 20081212
  Receipt Date: 20081212
  Transmission Date: 20090506
  Serious: Yes (Hospitalization)
  Sender: FDA-Public Use
  Company Number: None

PATIENT
  Age: 64 Year
  Sex: Male
  Weight: 103 kg

DRUGS (1)
  1. METFORMIN HCL [Suspect]
     Indication: TYPE 2 DIABETES MELLITUS
     Dosage: 500 MG BID PO
     Route: 048
     Dates: start: 20081126, end: 20081204

REACTIONS (4)
  - LIP SWELLING [None]
  - PRURITUS GENERALISED [None]
  - SWELLING FACE [None]
  - SWOLLEN TONGUE [None]
